FAERS Safety Report 8970091 (Version 1)
Quarter: 2012Q4

REPORT INFORMATION
  Report Type: 
  Country: PL (occurrence: US)
  Receive Date: 20121218
  Receipt Date: 20121218
  Transmission Date: 20130627
  Serious: No
  Sender: FDA-Public Use
  Company Number: US-BRISTOL-MYERS SQUIBB COMPANY-16533846

PATIENT
  Age: 26 Year
  Sex: Male
  Weight: 77 kg

DRUGS (2)
  1. ABILIFY [Suspect]
     Indication: DEPRESSION
     Dosage: took twice the amount of dose in Dec2011
     Dates: start: 201107
  2. ABILIFY [Suspect]
     Indication: PSYCHOTIC DISORDER
     Dosage: took twice the amount of dose in Dec2011
     Dates: start: 201107

REACTIONS (2)
  - Bradyphrenia [Unknown]
  - Learning disability [Unknown]
